FAERS Safety Report 10137737 (Version 1)
Quarter: 2014Q2

REPORT INFORMATION
  Report Type: Spontaneous
  Country: US (occurrence: US)
  Receive Date: 20140429
  Receipt Date: 20140429
  Transmission Date: 20141212
  Serious: Yes (Hospitalization)
  Sender: FDA-Public Use
  Company Number: US-BAYER-2014-059771

PATIENT
  Age: 35 Year
  Sex: Female
  Weight: 68.03 kg

DRUGS (4)
  1. YASMIN [Suspect]
     Dosage: UNK
     Dates: start: 20090107, end: 20091106
  2. YASMIN [Suspect]
     Dosage: UNK
     Dates: end: 20100218
  3. YAZ [Suspect]
  4. PROVENTIL [Concomitant]
     Dosage: 2 PUFF(S), Q4H, PRN

REACTIONS (1)
  - Pulmonary embolism [None]
